FAERS Safety Report 6060190-4 (Version None)
Quarter: 2009Q1

REPORT INFORMATION
  Report Type: 
  Country: None (occurrence: None)
  Receive Date: 20090128
  Receipt Date: 20090115
  Transmission Date: 20090719
  Serious: Yes (Hospitalization)
  Sender: FDA-Public Use
  Company Number: 230539K09USA

PATIENT
  Age: 65 Year
  Sex: Male

DRUGS (7)
  1. REBIF [Suspect]
     Indication: MULTIPLE SCLEROSIS
     Dosage: 44 MCG, 3 IN 1 WEEKS, SUBCUTANEOUS
     Route: 058
     Dates: start: 20040915
  2. UNIVASC [Concomitant]
  3. LIPITOR [Concomitant]
  4. ROPINIROL (ROPINIROLE) [Concomitant]
  5. CYCLOBENZAPRINE [Concomitant]
  6. LORAZEPAM [Concomitant]
  7. LEXAPRO [Concomitant]

REACTIONS (6)
  - ASTHENIA [None]
  - CONDITION AGGRAVATED [None]
  - DEHYDRATION [None]
  - DIARRHOEA HAEMORRHAGIC [None]
  - DIVERTICULITIS [None]
  - LABORATORY TEST ABNORMAL [None]
